FAERS Safety Report 6239507-3 (Version None)
Quarter: 2009Q2

REPORT INFORMATION
  Report Type: 
  Country: None (occurrence: None)
  Receive Date: 20090622
  Receipt Date: 20090619
  Transmission Date: 20091009
  Serious: Yes (Death)
  Sender: FDA-Public Use
  Company Number: US-ASTRAZENECA-2007UW12259

PATIENT
  Age: 54 Year
  Sex: Male
  Weight: 80.7 kg

DRUGS (2)
  1. SEROQUEL [Suspect]
     Indication: DEPRESSION
     Dosage: 200 TO 500 MG
     Route: 048
     Dates: start: 19970101, end: 20030301
  2. SEROQUEL [Suspect]
     Indication: INSOMNIA
     Dosage: 200 TO 500 MG
     Route: 048
     Dates: start: 19970101, end: 20030301

REACTIONS (3)
  - BLOOD CHOLESTEROL INCREASED [None]
  - DEATH [None]
  - TYPE 2 DIABETES MELLITUS [None]
